FAERS Safety Report 10851049 (Version 1)
Quarter: 2015Q1

REPORT INFORMATION
  Report Type: Spontaneous
  Country: US (occurrence: US)
  Receive Date: 20150222
  Receipt Date: 20150222
  Transmission Date: 20150721
  Serious: Yes (Other)
  Sender: FDA-Public Use
  Company Number: US-ALLERGAN-1402159US

PATIENT
  Sex: Female

DRUGS (7)
  1. RIFAXAMINE [Concomitant]
     Indication: PRODUCT USED FOR UNKNOWN INDICATION
  2. ROBINUL [Concomitant]
     Active Substance: GLYCOPYRROLATE
     Indication: PRODUCT USED FOR UNKNOWN INDICATION
  3. ATIVAN [Concomitant]
     Active Substance: LORAZEPAM
     Indication: ANXIETY
     Dosage: 0.5 MG, QD
     Route: 048
     Dates: end: 20140203
  4. DIAZEPAM. [Concomitant]
     Active Substance: DIAZEPAM
     Indication: ANXIETY
     Dosage: UNK
     Dates: start: 20140203
  5. DRYSOL [Concomitant]
     Indication: PRODUCT USED FOR UNKNOWN INDICATION
  6. LAMICTAL ODT [Concomitant]
     Active Substance: LAMOTRIGINE
     Indication: PRODUCT USED FOR UNKNOWN INDICATION
  7. BOTOX [Suspect]
     Active Substance: ONABOTULINUMTOXINA
     Indication: HYPERHIDROSIS
     Dosage: 100 UNITS, SINGLE
     Route: 058
     Dates: start: 20131212, end: 20131212

REACTIONS (9)
  - Fatigue [Not Recovered/Not Resolved]
  - Dry mouth [Recovering/Resolving]
  - Seizure [Recovering/Resolving]
  - Cold sweat [Recovering/Resolving]
  - Neuralgia [Recovering/Resolving]
  - Thyroid neoplasm [Not Recovered/Not Resolved]
  - Tremor [Recovering/Resolving]
  - Musculoskeletal stiffness [Recovering/Resolving]
  - Palpitations [Recovering/Resolving]
